FAERS Safety Report 14798962 (Version 1)
Quarter: 2018Q2

REPORT INFORMATION
  Report Type: Spontaneous
  Country: US (occurrence: US)
  Receive Date: 20180416
  Receipt Date: 20180416
  Transmission Date: 20180711
  Serious: No
  Sender: FDA-Public Use
  Company Number: None

PATIENT
  Age: 65 Year
  Sex: Female

DRUGS (14)
  1. PRED FORTE OPHT DROP [Concomitant]
  2. COENZYME Q10 [Concomitant]
     Active Substance: UBIDECARENONE
  3. AMPYRA [Suspect]
     Active Substance: DALFAMPRIDINE
     Indication: MULTIPLE SCLEROSIS
     Route: 048
     Dates: start: 201711
  4. FAMOTIDINE. [Concomitant]
     Active Substance: FAMOTIDINE
  5. VENTOLIN HFA [Concomitant]
     Active Substance: ALBUTEROL SULFATE
  6. ESTRING [Concomitant]
     Active Substance: ESTRADIOL
  7. LISINOPRIL-HCTZ [Concomitant]
     Active Substance: HYDROCHLOROTHIAZIDE\LISINOPRIL
  8. LEVOTHYROXINE. [Concomitant]
     Active Substance: LEVOTHYROXINE
  9. TAZODONE [Concomitant]
  10. BIOTIN [Concomitant]
     Active Substance: BIOTIN
  11. LIDEX TOP CREAM [Concomitant]
  12. ATENOLOL. [Concomitant]
     Active Substance: ATENOLOL
  13. ATROPINE OPHT DROP [Concomitant]
  14. FLONASE [Concomitant]
     Active Substance: FLUTICASONE PROPIONATE

REACTIONS (2)
  - Urinary tract infection [None]
  - Musculoskeletal pain [None]

NARRATIVE: CASE EVENT DATE: 20180411
